FAERS Safety Report 9155938 (Version 1)
Quarter: 2013Q1

REPORT INFORMATION
  Report Type: Spontaneous
  Country: IT (occurrence: IT)
  Receive Date: 20130311
  Receipt Date: 20130311
  Transmission Date: 20140127
  Serious: Yes (Hospitalization)
  Sender: FDA-Public Use
  Company Number: IT-UCBSA-080185

PATIENT
  Age: 36 Year
  Sex: Female

DRUGS (1)
  1. KEPPRA [Suspect]
     Indication: GRAND MAL CONVULSION
     Dosage: 500 MG 60 FILM COATED TABLET
     Route: 048
     Dates: start: 20121216, end: 20121216

REACTIONS (2)
  - Malaise [Recovering/Resolving]
  - Vertigo [Recovering/Resolving]
